FAERS Safety Report 4760251-3 (Version None)
Quarter: 2005Q3

REPORT INFORMATION
  Report Type: 
  Country: None (occurrence: None)
  Receive Date: 20050831
  Receipt Date: 20050817
  Transmission Date: 20060218
  Serious: Yes (Hospitalization, Other)
  Sender: FDA-Public Use
  Company Number: US_011074929

PATIENT
  Age: 73 Year
  Sex: Female
  Weight: 59 kg

DRUGS (8)
  1. INSULIN NORDISK MIXTARD (PORK) [Suspect]
     Indication: DIABETES MELLITUS
     Dosage: 20 U/2 DAY
     Dates: start: 19500101
  2. ILETIN I [Suspect]
     Indication: DIABETES MELLITUS
  3. HUMULIN-HUMAN NPH INSULIN (RDNA) (HUMAN INSULINI (RD [Suspect]
     Indication: DIABETES MELLITUS
     Dates: start: 19820101
  4. ILETIN-INSULIN-ANIMAL (INSULI [Suspect]
     Indication: DIABETES MELLITUS
     Dates: start: 19470101
  5. METOPROLOL [Concomitant]
  6. LANTUS [Concomitant]
  7. DIOVAN [Concomitant]
  8. HYDROCHLOROTHIAZIDE [Concomitant]

REACTIONS (8)
  - BLOOD CALCIUM INCREASED [None]
  - BLOOD GLUCOSE DECREASED [None]
  - BLOOD GLUCOSE FLUCTUATION [None]
  - CARDIAC VALVE DISEASE [None]
  - COMA [None]
  - HAND DEFORMITY [None]
  - INJECTION SITE REACTION [None]
  - PHARMACEUTICAL PRODUCT COMPLAINT [None]
